FAERS Safety Report 23790004 (Version 2)
Quarter: 2024Q2

REPORT INFORMATION
  Report Type: Report from Study
  Country: IT (occurrence: IT)
  Receive Date: 20240426
  Receipt Date: 20240503
  Transmission Date: 20240715
  Serious: Yes (Other)
  Sender: FDA-Public Use
  Company Number: None

PATIENT
  Age: 73 Year
  Sex: Male

DRUGS (1)
  1. CEMIPLIMAB [Suspect]
     Active Substance: CEMIPLIMAB
     Indication: Lung adenocarcinoma
     Dosage: 350 MG, Q3W,OGNI 3 SETTIMANE COME DA RCP (LA DOSE RACCOMANDATA E  350 MG DI CEMIPLIMAB OGNI 3 SETTIM
     Route: 042
     Dates: start: 20230404

REACTIONS (1)
  - Hepatitis C [Recovered/Resolved]

NARRATIVE: CASE EVENT DATE: 20240123
